FAERS Safety Report 9051606 (Version 1)
Quarter: 2013Q1

REPORT INFORMATION
  Report Type: Spontaneous
  Country: US (occurrence: US)
  Receive Date: 20130207
  Receipt Date: 20130207
  Transmission Date: 20140127
  Serious: No
  Sender: FDA-Public Use
  Company Number: US-BIOGENIDEC-2013BI009302

PATIENT
  Sex: Female

DRUGS (2)
  1. TYSABRI [Suspect]
     Indication: MULTIPLE SCLEROSIS
     Route: 042
     Dates: start: 20091016
  2. AVONEX [Concomitant]
     Indication: MULTIPLE SCLEROSIS
     Route: 030

REACTIONS (8)
  - Fall [Unknown]
  - Balance disorder [Recovered/Resolved]
  - Vein disorder [Recovered/Resolved]
  - Hemiparesis [Unknown]
  - Gait disturbance [Unknown]
  - Malaise [Recovered/Resolved]
  - Infusion site pain [Recovered/Resolved]
  - Influenza [Recovered/Resolved]
